FAERS Safety Report 8770084 (Version 2)
Quarter: 2012Q4

REPORT INFORMATION
  Report Type: 
  Country: GB (occurrence: GB)
  Receive Date: 20120905
  Receipt Date: 20121010
  Transmission Date: 20130627
  Serious: Yes (Other)
  Sender: FDA-Public Use
  Company Number: GB-009507513-1208GBR009689

PATIENT
  Age: 75 Year
  Sex: Female
  Weight: 62 kg

DRUGS (6)
  1. FOSAMAX [Suspect]
     Indication: PROPHYLAXIS
     Dosage: 70 mg, qw
     Route: 048
     Dates: start: 20050211, end: 20110706
  2. PREDNISOLONE [Concomitant]
     Indication: MYALGIA
     Dosage: 10 mg, qd
     Dates: start: 20050211, end: 20110301
  3. PREDNISOLONE [Concomitant]
     Dosage: 35 mg, UNK
  4. PREDNISOLONE [Concomitant]
     Dosage: 15 mg, UNK
  5. PREDNISOLONE [Concomitant]
     Dosage: 1 mg, UNK
     Dates: end: 201106
  6. CALCICHEW D3 [Concomitant]
     Indication: PROPHYLAXIS
     Dosage: UNK, bid
     Dates: start: 20050211, end: 20110301

REACTIONS (12)
  - Loss of consciousness [Recovering/Resolving]
  - Pain [Recovered/Resolved]
  - Feeling abnormal [Recovering/Resolving]
  - Weight decreased [Recovering/Resolving]
  - Ocular hyperaemia [Recovered/Resolved]
  - Lacrimation increased [Recovered/Resolved]
  - Foot fracture [Unknown]
  - Ligament sprain [Unknown]
  - Skin atrophy [Recovering/Resolving]
  - Influenza like illness [Unknown]
  - Mouth ulceration [Recovered/Resolved]
  - Pharyngeal ulceration [Recovered/Resolved]
